FAERS Safety Report 8095203-1 (Version None)
Quarter: 2011Q4

REPORT INFORMATION
  Report Type: 
  Country: None (occurrence: None)
  Receive Date: 20111222
  Receipt Date: 20111107
  Transmission Date: 20120403
  Serious: Yes (Hospitalization)
  Sender: FDA-Public Use
  Company Number: UTC-012155

PATIENT
  Age: 59 Year
  Sex: Female
  Weight: 53.6 kg

DRUGS (2)
  1. TYVASO [Suspect]
     Indication: PULMONARY HYPERTENSION
     Dosage: 216 MCG (54 MCG, 4 IN 1 D),INHALATION
     Route: 055
     Dates: start: 20110121
  2. OXYGEN(OXYGEN) [Concomitant]

REACTIONS (1)
  - LIMB INJURY [None]
